FAERS Safety Report 18581318 (Version 2)
Quarter: 2021Q1

REPORT INFORMATION
  Report Type: Spontaneous
  Country: US (occurrence: US)
  Receive Date: 20201204
  Receipt Date: 20210304
  Transmission Date: 20210419
  Serious: No
  Sender: FDA-Public Use
  Company Number: US-HARMONY BIOSCIENCES-2020HMY01221

PATIENT
  Age: 60 Year
  Sex: Female
  Weight: 74.38 kg

DRUGS (21)
  1. WAKIX [Suspect]
     Active Substance: PITOLISANT HYDROCHLORIDE
     Indication: NARCOLEPSY
     Dosage: 4.45 MG, 1X/DAY
     Route: 048
     Dates: start: 20200801, end: 20200807
  2. DEXEDRINE [Suspect]
     Active Substance: DEXTROAMPHETAMINE SULFATE
     Dosage: 1 DOSAGE UNITS
     Dates: end: 20200810
  3. DEXEDRINE [Suspect]
     Active Substance: DEXTROAMPHETAMINE SULFATE
     Dosage: UNK
     Dates: start: 2020
  4. VITAMIN D [Concomitant]
     Active Substance: VITAMIN D NOS
  5. FUROSEMIDE. [Concomitant]
     Active Substance: FUROSEMIDE
  6. WAKIX [Suspect]
     Active Substance: PITOLISANT HYDROCHLORIDE
     Indication: NARCOLEPSY
     Dosage: 17.8 MG, 1X/DAY
     Route: 048
     Dates: start: 202008
  7. DEXEDRINE [Suspect]
     Active Substance: DEXTROAMPHETAMINE SULFATE
     Dosage: 20 MG
     Dates: end: 2020
  8. ALBUTEROL INHALER [Concomitant]
     Active Substance: ALBUTEROL
  9. VITAMIN C [Concomitant]
     Active Substance: ASCORBIC ACID
  10. WAKIX [Suspect]
     Active Substance: PITOLISANT HYDROCHLORIDE
     Indication: CATAPLEXY
     Dosage: 4.45 MG, 1X/DAY
     Route: 048
     Dates: start: 2020
  11. WAKIX [Suspect]
     Active Substance: PITOLISANT HYDROCHLORIDE
     Dosage: ^9 MG^, 1X/DAY
     Route: 048
  12. IRON [Concomitant]
     Active Substance: IRON
  13. CALCIUM [Concomitant]
     Active Substance: CALCIUM
  14. COENZYME Q10 [Concomitant]
     Active Substance: DIETARY SUPPLEMENT\UBIDECARENONE
  15. FLONASE [Concomitant]
     Active Substance: FLUTICASONE PROPIONATE
  16. MVI [Concomitant]
     Active Substance: VITAMINS
  17. ROPINIROLE. [Concomitant]
     Active Substance: ROPINIROLE
  18. MAGNESIUM [Concomitant]
     Active Substance: MAGNESIUM
  19. QVAR [Concomitant]
     Active Substance: BECLOMETHASONE DIPROPIONATE
     Dosage: UNK, AS NEEDED
  20. WAKIX [Suspect]
     Active Substance: PITOLISANT HYDROCHLORIDE
     Indication: CATAPLEXY
  21. VITAMIN B12 [Concomitant]
     Active Substance: CYANOCOBALAMIN

REACTIONS (6)
  - Hot flush [Not Recovered/Not Resolved]
  - Emotional disorder [Recovering/Resolving]
  - Therapeutic product effect incomplete [Not Recovered/Not Resolved]
  - Cataplexy [Recovering/Resolving]
  - Mood altered [Recovering/Resolving]
  - Crying [Recovering/Resolving]

NARRATIVE: CASE EVENT DATE: 202008
